FAERS Safety Report 23029329 (Version 2)
Quarter: 2023Q4

REPORT INFORMATION
  Report Type: Spontaneous
  Country: CA (occurrence: CA)
  Receive Date: 20231004
  Receipt Date: 20231116
  Transmission Date: 20240109
  Serious: Yes (Hospitalization, Other)
  Sender: FDA-Public Use
  Company Number: CA-SANDOZ-SDZ2023CA035186

PATIENT
  Age: 27 Year
  Sex: Female
  Weight: 120 kg

DRUGS (22)
  1. ACETAMINOPHEN [Suspect]
     Active Substance: ACETAMINOPHEN
     Indication: Premedication
     Dosage: 650 MG
     Route: 048
  2. AMLODIPINE [Suspect]
     Active Substance: AMLODIPINE BESYLATE
     Indication: Hypertension
     Dosage: 5 MG, QD
     Route: 048
  3. CALCIUM CARBONATE [Suspect]
     Active Substance: CALCIUM CARBONATE
     Indication: Product used for unknown indication
     Dosage: 1 DF, QD, 1 EVERY 1 DAYS
     Route: 048
  4. DIPHENHYDRAMINE [Suspect]
     Active Substance: DIPHENHYDRAMINE
     Indication: Premedication
     Dosage: 50 MG, QD, 1 EVERY 1 DAYS
     Route: 065
  5. FOLIC ACID [Suspect]
     Active Substance: FOLIC ACID
     Indication: Product used for unknown indication
     Dosage: 5 MG 1 EVERY 1 DAYS
     Route: 048
  6. HYDROXYCHLOROQUINE [Suspect]
     Active Substance: HYDROXYCHLOROQUINE
     Indication: Product used for unknown indication
     Dosage: 400 MG, QD, 1 EVERY 1 DAYS
     Route: 048
  7. INDAPAMIDE [Suspect]
     Active Substance: INDAPAMIDE
     Indication: Hypertension
     Dosage: 1.25 MG 1EVERY 1 DAYS
     Route: 048
  8. LEFLUNOMIDE [Suspect]
     Active Substance: LEFLUNOMIDE
     Indication: Product used for unknown indication
     Dosage: UNK
     Route: 065
  9. METHOTREXATE [Suspect]
     Active Substance: METHOTREXATE
     Indication: Product used for unknown indication
     Dosage: UNK
     Route: 065
  10. METHYLPREDNISOLONE [Suspect]
     Active Substance: METHYLPREDNISOLONE
     Dosage: 100 MG
     Route: 042
  11. METHYLPREDNISOLONE [Suspect]
     Active Substance: METHYLPREDNISOLONE
     Indication: Product used for unknown indication
     Dosage: 500 MG
     Route: 042
  12. MYCOPHENOLATE SODIUM [Suspect]
     Active Substance: MYCOPHENOLATE SODIUM
     Indication: Product used for unknown indication
     Dosage: 360 MG 2 EVERY 1 DAYS
     Route: 048
  13. MYCOPHENOLATE SODIUM [Suspect]
     Active Substance: MYCOPHENOLATE SODIUM
     Indication: Systemic lupus erythematosus
     Dosage: 720 MG 2 EVERY 1 DAYS
     Route: 065
  14. MYCOPHENOLATE SODIUM [Suspect]
     Active Substance: MYCOPHENOLATE SODIUM
     Dosage: 720 MG
     Route: 065
  15. OLANZAPINE [Suspect]
     Active Substance: OLANZAPINE
     Indication: Psychotic disorder
     Dosage: 10 MG 1 EVERY 1 DAYS
     Route: 048
  16. PREDNISONE [Suspect]
     Active Substance: PREDNISONE
     Indication: Product used for unknown indication
     Dosage: 10 MG
     Route: 048
  17. PREDNISONE [Suspect]
     Active Substance: PREDNISONE
     Dosage: 1000 MG
     Route: 042
  18. PREDNISONE [Suspect]
     Active Substance: PREDNISONE
     Indication: Systemic lupus erythematosus
     Dosage: 50 MG
     Route: 048
  19. RITUXIMAB [Suspect]
     Active Substance: RITUXIMAB
     Indication: Product used for unknown indication
     Dosage: 1000 MG
     Route: 042
  20. APIXABAN [Suspect]
     Active Substance: APIXABAN
     Indication: Deep vein thrombosis
     Dosage: 5 MG, BID, 2 EVERY 1 DAYS
     Route: 048
  21. FERRIC POLYSACCHARIDE COMPLEX [Concomitant]
     Active Substance: FERRIC POLYSACCHARIDE COMPLEX
     Indication: Product used for unknown indication
     Dosage: UNK
     Route: 065
  22. SERTRALINE [Concomitant]
     Active Substance: SERTRALINE HYDROCHLORIDE
     Indication: Product used for unknown indication
     Dosage: 75 MG
     Route: 065

REACTIONS (18)
  - Arthralgia [Recovered/Resolved]
  - Blood creatinine increased [Recovered/Resolved]
  - Blood urine present [Recovered/Resolved]
  - Butterfly rash [Recovered/Resolved]
  - C-reactive protein increased [Recovered/Resolved]
  - COVID-19 pneumonia [Recovered/Resolved]
  - Central nervous system lupus [Recovered/Resolved]
  - Haemoglobin decreased [Recovered/Resolved]
  - Lupus nephritis [Recovered/Resolved]
  - Mouth ulceration [Recovered/Resolved]
  - Nephropathy [Recovered/Resolved]
  - Protein urine present [Recovered/Resolved]
  - Psychotic disorder [Recovered/Resolved]
  - Rash [Recovered/Resolved]
  - Red blood cell sedimentation rate increased [Recovered/Resolved]
  - Systemic lupus erythematosus [Recovered/Resolved]
  - Vasculitis [Recovered/Resolved]
  - Off label use [Recovered/Resolved]
